FAERS Safety Report 4331243-3 (Version None)
Quarter: 2004Q1

REPORT INFORMATION
  Report Type: 
  Country: None (occurrence: None)
  Receive Date: 20040329
  Receipt Date: 20040316
  Transmission Date: 20041129
  Serious: Yes (Hospitalization, Other)
  Sender: FDA-Public Use
  Company Number: 2004001985

PATIENT
  Sex: Male
  Weight: 85.7298 kg

DRUGS (10)
  1. TIKOSYN [Suspect]
     Indication: ATRIAL FIBRILLATION
     Dosage: 500 MCG (BID), ORAL
     Route: 048
     Dates: end: 20040108
  2. COUMADIN [Suspect]
     Indication: ILL-DEFINED DISORDER
  3. ACETYLSALICYLIC ACID SRT [Concomitant]
  4. ALL OHER THERAPEUTIC PRODUCTS [Concomitant]
  5. CHONDROITIN/GLUCOSAMINE (GLUCOSAMINE, CHONDROITIN) [Concomitant]
  6. MAGNESIUM (MAGNESIUM) [Concomitant]
  7. ALPHA-D-GALACTOSIDASE (ALPHA-D-GALACTOSIDASE) [Concomitant]
  8. GLUCOSAMINE (GLUCOSAMINE) [Concomitant]
  9. CALCIUM GLYCEROPHOSPHATE (CALCIUM GLYCEROPHOSPHATE) [Concomitant]
  10. ALL OTHER THERAPEUTIC PRODUCTS [Concomitant]

REACTIONS (6)
  - ATRIAL FIBRILLATION [None]
  - BLOOD URINE [None]
  - EPISTAXIS [None]
  - FLATULENCE [None]
  - MEDICATION ERROR [None]
  - X-RAY ABNORMAL [None]
